FAERS Safety Report 19034224 (Version 3)
Quarter: 2021Q4

REPORT INFORMATION
  Report Type: Report from Study
  Country: US (occurrence: US)
  Receive Date: 20210319
  Receipt Date: 20211118
  Transmission Date: 20220303
  Serious: No
  Sender: FDA-Public Use
  Company Number: NVSC2021US055326

PATIENT
  Sex: Female

DRUGS (1)
  1. KESIMPTA [Suspect]
     Active Substance: OFATUMUMAB
     Indication: Relapsing multiple sclerosis
     Dosage: QMO,BENEATH THE SKIN,USUALLY VIA INJECTION
     Route: 058

REACTIONS (5)
  - Neck pain [Unknown]
  - Gait disturbance [Unknown]
  - Muscle strain [Unknown]
  - Memory impairment [Unknown]
  - Incorrect dose administered [Unknown]
